FAERS Safety Report 6077364-9 (Version None)
Quarter: 2009Q1

REPORT INFORMATION
  Report Type: 
  Country: None (occurrence: None)
  Receive Date: 20090213
  Receipt Date: 20090205
  Transmission Date: 20090719
  Serious: Yes (Hospitalization)
  Sender: FDA-Public Use
  Company Number: CA-JNJFOC-20090201978

PATIENT
  Sex: Male
  Weight: 77 kg

DRUGS (4)
  1. REMICADE [Suspect]
     Route: 042
  2. REMICADE [Suspect]
     Dosage: 10TH INFUSION
     Route: 042
  3. REMICADE [Suspect]
     Dosage: 8TH INFUSION
     Route: 042
  4. REMICADE [Suspect]
     Indication: CROHN'S DISEASE
     Dosage: 6TH INFUSION
     Route: 042

REACTIONS (4)
  - ADVERSE EVENT [None]
  - DEHYDRATION [None]
  - INFUSION RELATED REACTION [None]
  - VOMITING [None]
